FAERS Safety Report 23167256 (Version 1)
Quarter: 2023Q4

REPORT INFORMATION
  Report Type: Spontaneous
  Country: US (occurrence: US)
  Receive Date: 20231109
  Receipt Date: 20231109
  Transmission Date: 20240110
  Serious: No
  Sender: FDA-Public Use
  Company Number: US-AMGEN-USASP2023197141

PATIENT
  Age: 70 Year
  Sex: Female

DRUGS (1)
  1. PROLIA [Suspect]
     Active Substance: DENOSUMAB
     Indication: Osteoporosis postmenopausal
     Dosage: 60 MILLIGRAM, QMO
     Route: 058
     Dates: start: 2015

REACTIONS (6)
  - Heart rate irregular [Recovered/Resolved]
  - Presyncope [Recovered/Resolved]
  - Injection site warmth [Recovered/Resolved]
  - Chest discomfort [Recovered/Resolved]
  - Foot deformity [Unknown]
  - Back pain [Unknown]

NARRATIVE: CASE EVENT DATE: 20230101
